FAERS Safety Report 16174283 (Version 1)
Quarter: 2019Q2

REPORT INFORMATION
  Report Type: Spontaneous
  Country: US (occurrence: US)
  Receive Date: 20190306
  Receipt Date: 20190306
  Transmission Date: 20190711
  Serious: No
  Sender: FDA-Public Use
  Company Number: None

PATIENT
  Age: 85 Year
  Sex: Female

DRUGS (1)
  1. PROLIA [Suspect]
     Active Substance: DENOSUMAB
     Dates: start: 20180831

REACTIONS (4)
  - Gingival recession [None]
  - Toothache [None]
  - Therapy cessation [None]
  - Bronchitis [None]

NARRATIVE: CASE EVENT DATE: 20180831
